FAERS Safety Report 14838089 (Version 1)
Quarter: 2018Q2

REPORT INFORMATION
  Report Type: Spontaneous
  Country: FR (occurrence: FR)
  Receive Date: 20180502
  Receipt Date: 20180502
  Transmission Date: 20180711
  Serious: Yes (Other)
  Sender: FDA-Public Use
  Company Number: FR-MERCK KGAA-2047024

PATIENT
  Sex: Female

DRUGS (1)
  1. NOVOTHYROX [Suspect]
     Active Substance: LEVOTHYROXINE SODIUM
     Indication: PRODUCT USED FOR UNKNOWN INDICATION

REACTIONS (13)
  - Asthenia [None]
  - Aggression [None]
  - Impaired driving ability [None]
  - Facial neuralgia [None]
  - Insomnia [None]
  - Weight increased [None]
  - Perineal abscess [None]
  - Abnormal behaviour [None]
  - Hyperhidrosis [None]
  - Sleep disorder [None]
  - Affective disorder [None]
  - Crying [None]
  - Alopecia [None]
